FAERS Safety Report 16418790 (Version 1)
Quarter: 2019Q2

REPORT INFORMATION
  Report Type: Spontaneous
  Country: CA (occurrence: CA)
  Receive Date: 20190612
  Receipt Date: 20190612
  Transmission Date: 20190711
  Serious: Yes (Other)
  Sender: FDA-Public Use
  Company Number: CA-AUROBINDO-AUR-APL-2019-032191

PATIENT

DRUGS (4)
  1. PAROXETINE TABLET [Suspect]
     Active Substance: PAROXETINE
     Indication: PANIC DISORDER
     Dosage: 20 MILLIGRAM, DAILY
     Route: 065
  2. FLUOXETINE [Suspect]
     Active Substance: FLUOXETINE HYDROCHLORIDE
     Indication: AGORAPHOBIA
     Dosage: 10 MILLIGRAM, DAILY
     Route: 065
  3. FLUOXETINE [Suspect]
     Active Substance: FLUOXETINE HYDROCHLORIDE
     Indication: PANIC DISORDER
     Dosage: 20 MILLIGRAM, DAILY
     Route: 065
  4. PAROXETINE TABLET [Suspect]
     Active Substance: PAROXETINE
     Indication: AGORAPHOBIA
     Dosage: 10 MILLIGRAM, DAILY
     Route: 065

REACTIONS (4)
  - Affective disorder [Unknown]
  - Cyclothymic disorder [Unknown]
  - Drug withdrawal syndrome [Unknown]
  - Anxiety [Unknown]
